FAERS Safety Report 7281092-1 (Version None)
Quarter: 2011Q1

REPORT INFORMATION
  Report Type: 
  Country: None (occurrence: None)
  Receive Date: 20110208
  Receipt Date: 20110203
  Transmission Date: 20110831
  Serious: Yes (Other)
  Sender: FDA-Public Use
  Company Number: FR-MERCK-1102FRA00032

PATIENT
  Age: 22 Year
  Sex: Male

DRUGS (6)
  1. IFOSFAMIDE [Suspect]
     Route: 042
     Dates: start: 20100111
  2. VINCRISTINE SULFATE [Concomitant]
     Route: 042
     Dates: start: 20100111
  3. EMEND [Suspect]
     Route: 048
     Dates: start: 20100112, end: 20100113
  4. DOXORUBICIN [Concomitant]
     Route: 042
     Dates: start: 20100111
  5. EMEND [Suspect]
     Indication: PROPHYLAXIS OF NAUSEA AND VOMITING
     Route: 048
     Dates: start: 20100111, end: 20100111
  6. ETOPOSIDE [Concomitant]
     Route: 042
     Dates: start: 20100111

REACTIONS (2)
  - ENCEPHALOPATHY [None]
  - CONVULSION [None]
